FAERS Safety Report 22388532 (Version 19)
Quarter: 2024Q4

REPORT INFORMATION
  Report Type: Report from Study
  Country: CA (occurrence: CA)
  Receive Date: 20230531
  Receipt Date: 20241230
  Transmission Date: 20250114
  Serious: Yes (Hospitalization, Other)
  Sender: GLAXOSMITHKLINE
  Company Number: CA-GLAXOSMITHKLINE-CA2023AMR076094

PATIENT

DRUGS (17)
  1. MEPOLIZUMAB [Suspect]
     Active Substance: MEPOLIZUMAB
     Indication: Asthma
     Dosage: 100 MG, Q4W
     Route: 058
     Dates: start: 20200424
  2. MEPOLIZUMAB [Suspect]
     Active Substance: MEPOLIZUMAB
     Indication: Asthma
     Dosage: 100 MG, Q4W
     Route: 058
  3. MEPOLIZUMAB [Suspect]
     Active Substance: MEPOLIZUMAB
     Indication: Asthma
     Dosage: 100 MG, Q4W
     Route: 058
  4. MEPOLIZUMAB [Suspect]
     Active Substance: MEPOLIZUMAB
     Indication: Asthma
     Dosage: 100 MG, Q4W
     Route: 058
  5. MEPOLIZUMAB [Suspect]
     Active Substance: MEPOLIZUMAB
     Indication: Asthma
     Dosage: 100 MG, Q4W
     Route: 058
  6. MEPOLIZUMAB [Suspect]
     Active Substance: MEPOLIZUMAB
     Indication: Asthma
     Dosage: 100 MG, Q4W
     Route: 058
  7. MEPOLIZUMAB [Suspect]
     Active Substance: MEPOLIZUMAB
     Indication: Asthma
     Dosage: 100 MG, Q4W
     Route: 058
  8. IRBESARTAN [Suspect]
     Active Substance: IRBESARTAN
     Indication: Product used for unknown indication
     Dosage: UNK
  9. VENTOLIN [Concomitant]
     Active Substance: ALBUTEROL SULFATE
     Indication: Product used for unknown indication
     Dosage: UNK
  10. AZITHROMYCIN [Concomitant]
     Active Substance: AZITHROMYCIN
     Indication: Product used for unknown indication
     Dosage: UNK
  11. FUROSEMIDE [Concomitant]
     Active Substance: FUROSEMIDE
     Indication: Product used for unknown indication
     Dosage: 40 MG
     Dates: start: 20230311
  12. GLICLAZIDE [Concomitant]
     Active Substance: GLICLAZIDE
     Indication: Product used for unknown indication
     Dosage: 60 MG
     Dates: start: 20230331
  13. TRELEGY ELLIPTA [Concomitant]
     Active Substance: FLUTICASONE FUROATE\UMECLIDINIUM BROMIDE\VILANTEROL TRIFENATATE
     Indication: Product used for unknown indication
     Dosage: UNK
  14. DILAUDID [Concomitant]
     Active Substance: HYDROMORPHONE HYDROCHLORIDE
     Indication: Product used for unknown indication
     Dosage: 1 MG
  15. COVID-19 VACCINE [Concomitant]
     Indication: Product used for unknown indication
     Dosage: UNK
  16. LOSARTAN [Concomitant]
     Active Substance: LOSARTAN
     Indication: Product used for unknown indication
     Dosage: 75 MG
  17. LOSARTAN [Concomitant]
     Active Substance: LOSARTAN
     Dosage: 25 MG

REACTIONS (49)
  - Post procedural complication [Unknown]
  - Lung lobectomy [Recovered/Resolved]
  - Pneumonia [Unknown]
  - Pleural effusion [Unknown]
  - Lung operation [Unknown]
  - Bacterial infection [Unknown]
  - Chills [Unknown]
  - Pyrexia [Unknown]
  - Hyperhidrosis [Unknown]
  - Asthma [Unknown]
  - Malaise [Unknown]
  - Dyspnoea [Unknown]
  - Lung neoplasm malignant [Recovered/Resolved]
  - Diabetes mellitus inadequate control [Not Recovered/Not Resolved]
  - Lung carcinoma cell type unspecified recurrent [Unknown]
  - Back pain [Not Recovered/Not Resolved]
  - Productive cough [Unknown]
  - Dizziness [Recovered/Resolved]
  - Musculoskeletal pain [Not Recovered/Not Resolved]
  - Sciatica [Not Recovered/Not Resolved]
  - Scratch [Unknown]
  - Influenza [Unknown]
  - Peripheral swelling [Not Recovered/Not Resolved]
  - Erythema [Unknown]
  - Pain in extremity [Not Recovered/Not Resolved]
  - Arterial occlusive disease [Unknown]
  - Skin laceration [Unknown]
  - Sputum discoloured [Unknown]
  - Injection site pain [Unknown]
  - Dyspnoea exertional [Unknown]
  - Loss of personal independence in daily activities [Unknown]
  - Middle insomnia [Unknown]
  - Pain [Unknown]
  - Muscle spasms [Unknown]
  - Wheezing [Unknown]
  - Nasopharyngitis [Recovered/Resolved]
  - Dyskinesia [Unknown]
  - Decreased appetite [Unknown]
  - Cough [Unknown]
  - Fatigue [Not Recovered/Not Resolved]
  - Body temperature increased [Unknown]
  - Blood pressure decreased [Unknown]
  - Sputum discoloured [Unknown]
  - Headache [Recovered/Resolved]
  - Infection [Unknown]
  - Osteoarthritis [Unknown]
  - Pulmonary mass [Unknown]
  - Arthralgia [Not Recovered/Not Resolved]
  - Product dose omission issue [Unknown]

NARRATIVE: CASE EVENT DATE: 20230307
